FAERS Safety Report 12950412 (Version 3)
Quarter: 2017Q1

REPORT INFORMATION
  Report Type: Spontaneous
  Country: US (occurrence: US)
  Receive Date: 20161117
  Receipt Date: 20170206
  Transmission Date: 20170428
  Serious: Yes (Other)
  Sender: FDA-Public Use
  Company Number: US-SMITH AND NEPHEW, INC-2016SMT00990

PATIENT
  Age: 70 Year
  Sex: Female
  Weight: 115.65 kg

DRUGS (4)
  1. UNSPECIFIED SLEEP MEDICATION [Concomitant]
     Dosage: 1 TABLETS, 1X/DAY
  2. UNSPECIFIED BLOOD PRESSURE MEDICATION [Concomitant]
     Active Substance: UNSPECIFIED INGREDIENT
     Dosage: 1 TABLETS, 1X/DAY
  3. REGRANEX [Suspect]
     Active Substance: BECAPLERMIN
     Indication: DIABETIC ULCER
     Dosage: SOMETIMES ONCE A DAY, SOMETIMES TWICE A DAY
     Dates: end: 20161028
  4. UNSPECIFIED CARDIAC MEDICATION [Concomitant]
     Dosage: 1 TABLETS, 1X/DAY

REACTIONS (5)
  - Inappropriate schedule of drug administration [Not Recovered/Not Resolved]
  - Drug ineffective [Not Recovered/Not Resolved]
  - Skin graft detachment [Recovered/Resolved]
  - Urinary tract infection [Unknown]
  - Nasopharyngitis [Unknown]

NARRATIVE: CASE EVENT DATE: 2016
